FAERS Safety Report 4364503-0 (Version None)
Quarter: 2004Q2

REPORT INFORMATION
  Report Type: 
  Country: None (occurrence: None)
  Receive Date: 20040519
  Receipt Date: 20040505
  Transmission Date: 20050107
  Serious: Yes (Hospitalization)
  Sender: FDA-Public Use
  Company Number: 02100-USA-04-0200

PATIENT
  Age: 79 Year
  Sex: Male

DRUGS (16)
  1. PLETAL [Suspect]
     Indication: INTERMITTENT CLAUDICATION
     Dosage: 100 MG BID ORAL
     Route: 048
     Dates: start: 20030527, end: 20040317
  2. PLETAL [Suspect]
     Indication: INTERMITTENT CLAUDICATION
     Dosage: 50 MG BID ORAL
     Route: 048
     Dates: start: 20030527, end: 20040317
  3. PLACEBO [Suspect]
     Indication: INTERMITTENT CLAUDICATION
     Dosage: 2 DF BID ORAL
     Route: 048
     Dates: start: 20030527, end: 20040317
  4. PLACEBO [Suspect]
     Indication: INTERMITTENT CLAUDICATION
     Dosage: 1 DF BID ORAL
     Route: 048
     Dates: start: 20030527, end: 20040317
  5. HYTRIN [Concomitant]
  6. AMBIEN [Concomitant]
  7. ATENOLOL [Concomitant]
  8. HYZAAR [Concomitant]
  9. COUMADIN [Concomitant]
  10. QUININE [Concomitant]
  11. DARVOCET [Concomitant]
  12. TYLENOL [Concomitant]
  13. VITAMIN C [Concomitant]
  14. VITAMIN E [Concomitant]
  15. GLUCOSAMINE [Concomitant]
  16. GINKO BILOBA [Concomitant]

REACTIONS (16)
  - ASTHENIA [None]
  - ATRIAL FLUTTER [None]
  - ATRIOVENTRICULAR BLOCK [None]
  - BLOOD CREATININE INCREASED [None]
  - BLOOD PRESSURE INCREASED [None]
  - BLOOD UREA INCREASED [None]
  - CAROTID ARTERY STENOSIS [None]
  - CAROTID ARTERY THROMBOSIS [None]
  - CEREBRAL INFARCTION [None]
  - DYSPHAGIA [None]
  - ELECTROCARDIOGRAM ST SEGMENT DEPRESSION [None]
  - EMBOLIC STROKE [None]
  - EMBOLISM [None]
  - INTERNATIONAL NORMALISED RATIO DECREASED [None]
  - TONGUE PARALYSIS [None]
  - WHITE BLOOD CELL COUNT INCREASED [None]
